FAERS Safety Report 9025980 (Version 1)
Quarter: 2013Q1

REPORT INFORMATION
  Report Type: Spontaneous
  Country: DK (occurrence: None)
  Receive Date: 20130104
  Receipt Date: 20130104
  Transmission Date: 20140127
  Serious: Yes (Hospitalization)
  Sender: FDA-Public Use
  Company Number: 2013MA000035

PATIENT
  Sex: Female

DRUGS (2)
  1. BISOPROLOL FUMARATE AND HYDROCHLOROTHIAZIDE TABLETS, 2.5 MG/6.25 MG (PUREPAC) (GALENIC/BISOPROLOL/HYDROCHLOROTHIAZIDE/) [Suspect]
  2. RAMIPRIL [Suspect]

REACTIONS (2)
  - Arrhythmia [None]
  - Hyperkalaemia [None]
